FAERS Safety Report 6677878-4 (Version None)
Quarter: 2010Q2

REPORT INFORMATION
  Report Type: 
  Country: None (occurrence: None)
  Receive Date: 20100412
  Receipt Date: 20100331
  Transmission Date: 20101027
  Serious: No
  Sender: FDA-Public Use
  Company Number: US-ALEXION-A201000382

PATIENT
  Sex: Male

DRUGS (2)
  1. SOLIRIS [Suspect]
     Indication: PAROXYSMAL NOCTURNAL HAEMOGLOBINURIA
     Dosage: UNK
     Route: 042
     Dates: start: 20071201
  2. SOLIRIS [Suspect]
     Dosage: 900 MG, Q2WK
     Route: 042

REACTIONS (8)
  - FATIGUE [None]
  - HYPERSENSITIVITY [None]
  - HYPERSOMNIA [None]
  - NASAL CONGESTION [None]
  - NASOPHARYNGITIS [None]
  - PAIN [None]
  - RHINORRHOEA [None]
  - SNEEZING [None]
